FAERS Safety Report 11114915 (Version 3)
Quarter: 2016Q2

REPORT INFORMATION
  Report Type: Report from Study
  Country: US (occurrence: US)
  Receive Date: 20150515
  Receipt Date: 20160621
  Transmission Date: 20160815
  Serious: Yes (Other)
  Sender: FDA-Public Use
  Company Number: US-AMGEN-USASP2015047221

PATIENT
  Age: 77 Year
  Sex: Male

DRUGS (1)
  1. ENBREL [Suspect]
     Active Substance: ETANERCEPT
     Indication: RHEUMATOID ARTHRITIS
     Dosage: 25 MG, EVERY 10 DAYS
     Route: 065
     Dates: start: 2001

REACTIONS (10)
  - Lower limb fracture [Unknown]
  - Blister [Not Recovered/Not Resolved]
  - Upper limb fracture [Unknown]
  - Formication [Unknown]
  - Acarodermatitis [Unknown]
  - Peripheral swelling [Not Recovered/Not Resolved]
  - Rash generalised [Unknown]
  - Fall [Unknown]
  - Joint injury [Not Recovered/Not Resolved]
  - Joint range of motion decreased [Not Recovered/Not Resolved]

NARRATIVE: CASE EVENT DATE: 201501
